FAERS Safety Report 10429245 (Version 1)
Quarter: 2014Q3

REPORT INFORMATION
  Report Type: Spontaneous
  Country: US (occurrence: None)
  Receive Date: 20140902
  Receipt Date: 20140902
  Transmission Date: 20150326
  Serious: Yes (Hospitalization)
  Sender: FDA-Public Use
  Company Number: None

PATIENT
  Age: 30 Year
  Sex: Female

DRUGS (11)
  1. PIPERACILLIN/TAZOBACTAM [Concomitant]
     Active Substance: PIPERACILLIN SODIUM\TAZOBACTAM SODIUM
  2. SULFAMETHOXAZOLE/TRIMETHOPRIM [Concomitant]
     Active Substance: SULFAMETHOXAZOLE\TRIMETHOPRIM
  3. DEXTROSE. [Concomitant]
     Active Substance: DEXTROSE
  4. FAMOTIDINE. [Concomitant]
     Active Substance: FAMOTIDINE
  5. ACETAMINOPHEN. [Suspect]
     Active Substance: ACETAMINOPHEN
     Indication: SUICIDE ATTEMPT
     Route: 048
     Dates: start: 20140713
  6. FENTANYL. [Concomitant]
     Active Substance: FENTANYL
  7. VANCOMYCIN [Concomitant]
     Active Substance: VANCOMYCIN
  8. INSULIN ASPART [Concomitant]
     Active Substance: INSULIN ASPART
  9. LEVOTHYROXINE [Concomitant]
     Active Substance: LEVOTHYROXINE
  10. LIDOCAINE. [Concomitant]
     Active Substance: LIDOCAINE
  11. SODIUM BICARBONATE. [Concomitant]
     Active Substance: SODIUM BICARBONATE

REACTIONS (4)
  - Overdose [None]
  - Alanine aminotransferase increased [None]
  - International normalised ratio increased [None]
  - Aspartate aminotransferase increased [None]

NARRATIVE: CASE EVENT DATE: 20140713
